FAERS Safety Report 4641000-6 (Version None)
Quarter: 2005Q2

REPORT INFORMATION
  Report Type: 
  Country: None (occurrence: None)
  Receive Date: 20050419
  Receipt Date: 20050419
  Transmission Date: 20051028
  Serious: No
  Sender: FDA-Public Use
  Company Number: None

PATIENT
  Age: 47 Year
  Sex: Male
  Weight: 149 kg

DRUGS (3)
  1. DICLOXACILLIN [Suspect]
     Indication: STAPHYLOCOCCAL INFECTION
     Dosage: PO
     Route: 048
  2. CLOTRIMOZOLE [Concomitant]
  3. BACITRICIN OINTMENT [Concomitant]

REACTIONS (1)
  - RASH [None]
